FAERS Safety Report 16886612 (Version 2)
Quarter: 2019Q4

REPORT INFORMATION
  Report Type: Spontaneous
  Country: US (occurrence: US)
  Receive Date: 20191004
  Receipt Date: 20191202
  Transmission Date: 20200122
  Serious: No
  Sender: FDA-Public Use
  Company Number: US-SA-2019SA274641

PATIENT
  Age: 71 Year
  Sex: Male
  Weight: 83.9 kg

DRUGS (2)
  1. COUMADIN [Concomitant]
     Active Substance: WARFARIN SODIUM
     Dosage: 2 MG
     Dates: start: 20190821, end: 20190901
  2. ENOXAPARIN SODIUM - WINTHROP [Suspect]
     Active Substance: ENOXAPARIN SODIUM
     Indication: CARDIAC VALVE DISEASE
     Dosage: 120 MG, QD (EACH EVENING)
     Route: 042
     Dates: start: 20190928, end: 20191105

REACTIONS (1)
  - No adverse event [Unknown]
